FAERS Safety Report 12368826 (Version 2)
Quarter: 2016Q2

REPORT INFORMATION
  Report Type: Spontaneous
  Country: BR (occurrence: BR)
  Receive Date: 20160513
  Receipt Date: 20160610
  Transmission Date: 20160815
  Serious: Yes (Other)
  Sender: FDA-Public Use
  Company Number: BR-PFIZER INC-2016251218

PATIENT
  Age: 83 Year
  Sex: Female
  Weight: 65 kg

DRUGS (1)
  1. XALATAN [Suspect]
     Active Substance: LATANOPROST
     Indication: GLAUCOMA
     Dosage: 2 DROPS IN BOTH EYES, 2X/DAY
     Route: 047
     Dates: start: 2011

REACTIONS (3)
  - Cataract [Recovered/Resolved]
  - Product use issue [Unknown]
  - Glaucoma [Recovered/Resolved]

NARRATIVE: CASE EVENT DATE: 2014
